FAERS Safety Report 21231076 (Version 1)
Quarter: 2022Q3

REPORT INFORMATION
  Report Type: Spontaneous
  Country: JP (occurrence: JP)
  Receive Date: 20220819
  Receipt Date: 20220819
  Transmission Date: 20221027
  Serious: Yes (Other)
  Sender: FDA-Public Use
  Company Number: JP-BRISTOL-MYERS SQUIBB COMPANY-2022-089951

PATIENT
  Age: 76 Year
  Sex: Female
  Weight: 46.3 kg

DRUGS (2)
  1. YERVOY [Suspect]
     Active Substance: IPILIMUMAB
     Indication: Malignant melanoma
     Dosage: 3MG/KG?Q3WK
     Route: 065
  2. OPDIVO [Suspect]
     Active Substance: NIVOLUMAB
     Indication: Malignant melanoma
     Dosage: 3MG/KG, Q2WK, IV DRIP
     Route: 041

REACTIONS (3)
  - Leukoderma [Unknown]
  - Tumour pseudoprogression [Unknown]
  - Adrenal insufficiency [Recovering/Resolving]
